FAERS Safety Report 7391096-6 (Version None)
Quarter: 2011Q1

REPORT INFORMATION
  Report Type: 
  Country: None (occurrence: None)
  Receive Date: 20110324
  Receipt Date: 20110308
  Transmission Date: 20110831
  Serious: Yes (Hospitalization)
  Sender: FDA-Public Use
  Company Number: FK201100445

PATIENT
  Age: 70 Year
  Sex: Female

DRUGS (4)
  1. FLUOROURACIL [Suspect]
     Indication: RECTAL CANCER
     Dosage: 2400 MG/M2, CONTINUOUS INFUSION OVER 46 HOURS
  2. OXALIPLATIN (OXALIPLATIN) (OXALIPLATIN) [Concomitant]
  3. BEVACIZUMAB (BEVACIZUMAB) (BEVACIZUMAB) [Concomitant]
  4. FOLINIC ACID (FOLINIC ACID) (FOLINIC ACID) [Concomitant]

REACTIONS (1)
  - HYPERAMMONAEMIC ENCEPHALOPATHY [None]
